FAERS Safety Report 16660272 (Version 1)
Quarter: 2019Q3

REPORT INFORMATION
  Report Type: Spontaneous
  Country: US (occurrence: US)
  Receive Date: 20190618
  Receipt Date: 20190618
  Transmission Date: 20191004
  Serious: Yes (Hospitalization)
  Sender: FDA-Public Use
  Company Number: None

PATIENT
  Age: 63 Year
  Sex: Female

DRUGS (7)
  1. CELEXA [Concomitant]
     Active Substance: CITALOPRAM HYDROBROMIDE
  2. VRAYLAR [Concomitant]
     Active Substance: CARIPRAZINE
  3. BENADRYL [Concomitant]
     Active Substance: DIPHENHYDRAMINE HYDROCHLORIDE
  4. LETEOZOLE [Concomitant]
  5. IBRANCE [Suspect]
     Active Substance: PALBOCICLIB
  6. CITALOPRAM [Concomitant]
     Active Substance: CITALOPRAM HYDROBROMIDE
  7. MELATONIN [Concomitant]
     Active Substance: MELATONIN

REACTIONS (2)
  - Hallucination [None]
  - Mental disorder [None]

NARRATIVE: CASE EVENT DATE: 201905
